FAERS Safety Report 9556890 (Version 1)
Quarter: 2013Q3

REPORT INFORMATION
  Report Type: Spontaneous
  Country: FR (occurrence: FR)
  Receive Date: 20130926
  Receipt Date: 20130926
  Transmission Date: 20140515
  Serious: Yes (Death, Life-Threatening, Hospitalization)
  Sender: FDA-Public Use
  Company Number: FR-PFIZER INC-2013274595

PATIENT
  Age: 68 Year
  Sex: Male
  Weight: 91.5 kg

DRUGS (29)
  1. ZYVOXID [Suspect]
     Indication: STAPHYLOCOCCAL SEPSIS
     Dosage: UNK
     Route: 042
     Dates: start: 20130621, end: 20130712
  2. TAZOCILLINE [Suspect]
     Indication: PNEUMONIA
     Dosage: UNK
     Route: 042
     Dates: start: 20130524, end: 20130527
  3. TAZOCILLINE [Suspect]
     Indication: STAPHYLOCOCCAL SEPSIS
     Dosage: UNK
     Route: 042
     Dates: start: 20130617, end: 20130618
  4. TAZOCILLINE [Suspect]
     Dosage: UNK
     Dates: start: 20130708
  5. VANCOMYCINE [Suspect]
     Indication: CLOSTRIDIUM DIFFICILE COLITIS
     Dosage: UNK
     Route: 042
     Dates: start: 20130625, end: 20130705
  6. VANCOCIN [Suspect]
     Indication: STAPHYLOCOCCAL SEPSIS
     Dosage: UNK
     Route: 048
     Dates: start: 20130618, end: 20130621
  7. VANCOCIN [Suspect]
     Dosage: UNK
     Route: 042
     Dates: start: 201307, end: 201307
  8. AUGMENTIN [Suspect]
     Indication: PNEUMONIA
     Dosage: UNK
     Route: 042
     Dates: start: 20130527, end: 20130531
  9. CIFLOX [Suspect]
     Indication: PNEUMONIA
     Dosage: UNK
     Route: 042
     Dates: start: 20130525, end: 20130527
  10. CIFLOX [Suspect]
     Dosage: UNK
     Route: 042
     Dates: start: 20130616, end: 20130618
  11. SPIRIVA [Concomitant]
  12. SYMBICORT [Concomitant]
  13. TRIATEC [Concomitant]
     Dosage: 10 MG, DAILY
  14. APROVEL [Concomitant]
     Dosage: 300 MG, DAILY
  15. HYPERIUM [Concomitant]
     Dosage: 1 MG, 2X/DAY
  16. AMLOR [Concomitant]
     Dosage: 5 MG, DAILY
  17. LASILIX [Concomitant]
     Dosage: 250 MG, DAILY
  18. KARDEGIC [Concomitant]
     Dosage: 75 MG, DAILY
  19. LANTUS [Concomitant]
     Dosage: 12 IU, IN THE EVENING
  20. HUMALOG [Concomitant]
     Dosage: 6 IU, 3X/DAY
  21. PARACETAMOL [Concomitant]
  22. CETIRIZINE [Concomitant]
     Dosage: 10 MG, IN THE EVENING
  23. NORSET [Concomitant]
     Dosage: 15 MG, IN THE EVENING
  24. BETNEVAL [Concomitant]
     Dosage: 1 APPLICATION DAILY
  25. SILVER NITRATE [Concomitant]
     Dosage: 1 APPLICATION DAILY
  26. ROCEPHINE [Concomitant]
     Dosage: UNK
     Dates: start: 20130523
  27. BRICANYL [Concomitant]
  28. ATROVENT [Concomitant]
  29. HEPARIN SODIUM [Concomitant]
     Indication: THROMBOPHLEBITIS SEPTIC
     Dosage: UNK
     Dates: start: 20130618, end: 20130703

REACTIONS (5)
  - Hypersensitivity vasculitis [Fatal]
  - Vasculitis necrotising [Fatal]
  - Skin necrosis [Fatal]
  - Vascular purpura [Not Recovered/Not Resolved]
  - Pruritus [Not Recovered/Not Resolved]
